FAERS Safety Report 9483425 (Version 2)
Quarter: 2013Q4

REPORT INFORMATION
  Report Type: Spontaneous
  Country: US (occurrence: US)
  Receive Date: 20130828
  Receipt Date: 20131001
  Transmission Date: 20140711
  Serious: Yes (Hospitalization, Other)
  Sender: FDA-Public Use
  Company Number: US-JNJFOC-20130812112

PATIENT
  Age: 76 Year
  Sex: Male
  Weight: 87.09 kg

DRUGS (14)
  1. XARELTO [Suspect]
     Indication: CEREBROVASCULAR ACCIDENT PROPHYLAXIS
     Dosage: 15MG/TABLET, 15MG/ONCE A DAY
     Route: 048
     Dates: start: 20130814, end: 20130821
  2. XARELTO [Suspect]
     Indication: CEREBROVASCULAR ACCIDENT PROPHYLAXIS
     Dosage: 20MG/TABLET, 20MG/ONCE A DAY
     Route: 048
     Dates: start: 20130122, end: 20130814
  3. XARELTO [Suspect]
     Indication: ATRIAL FIBRILLATION
     Dosage: 15MG/TABLET, 15MG/ONCE A DAY
     Route: 048
     Dates: start: 20130814, end: 20130821
  4. XARELTO [Suspect]
     Indication: ATRIAL FIBRILLATION
     Dosage: 20MG/TABLET, 20MG/ONCE A DAY
     Route: 048
     Dates: start: 20130122, end: 20130814
  5. METOPROLOL [Concomitant]
     Route: 048
  6. SIMVASTATIN [Concomitant]
     Route: 048
  7. LASIX [Concomitant]
     Route: 048
  8. LOVENOX [Concomitant]
     Route: 058
  9. METOPROLOL TARTRATE [Concomitant]
     Route: 048
  10. MIRALAX [Concomitant]
     Dosage: 17 G/DOSE MIXED WITH 8 OUNCES OF WATER, JUICE, SODA, COFFEE OR TEA
     Route: 048
  11. SIMVASTATIN [Concomitant]
     Route: 048
  12. GLYCERINE [Concomitant]
     Dosage: ADULT
     Route: 065
  13. WARFARIN SODIUM [Concomitant]
     Dosage: 1 TAB EVERY DAY OR AS DIRECTED
     Route: 048
  14. LISINOPRIL [Concomitant]
     Route: 065

REACTIONS (7)
  - Intestinal obstruction [Recovered/Resolved]
  - Abdominal distension [Recovered/Resolved]
  - Oedema peripheral [Unknown]
  - Scrotal oedema [Not Recovered/Not Resolved]
  - Creatinine renal clearance decreased [Not Recovered/Not Resolved]
  - Deep vein thrombosis [Not Recovered/Not Resolved]
  - Weight decreased [Unknown]
